FAERS Safety Report 5339075-4 (Version None)
Quarter: 2007Q2

REPORT INFORMATION
  Report Type: 
  Country: None (occurrence: None)
  Receive Date: 20070330
  Receipt Date: 20060920
  Transmission Date: 20071010
  Serious: Yes (Life-Threatening, Other)
  Sender: FDA-Public Use
  Company Number: 2006EN000166

PATIENT
  Age: 14 Year
  Sex: Male
  Weight: 48.4 kg

DRUGS (3)
  1. ONCASPAR [Suspect]
     Dosage: 3425 IU; IM
     Route: 030
     Dates: end: 20060101
  2. ONCASPAR [Suspect]
     Dosage: 3425 IU; IM
     Route: 030
     Dates: end: 20060228
  3. VINCRISTINE [Concomitant]

REACTIONS (4)
  - ANAPHYLACTIC REACTION [None]
  - RASH [None]
  - SWELLING FACE [None]
  - URTICARIA [None]
